FAERS Safety Report 12790083 (Version 1)
Quarter: 2016Q3

REPORT INFORMATION
  Report Type: Spontaneous
  Country: JP (occurrence: JP)
  Receive Date: 20160928
  Receipt Date: 20160928
  Transmission Date: 20161109
  Serious: Yes (Hospitalization)
  Sender: FDA-Public Use
  Company Number: JP-SA-2016SA178360

PATIENT
  Age: 77 Year
  Sex: Female

DRUGS (9)
  1. CALCIUM LEVOFOLINATE [Concomitant]
     Active Substance: LEVOLEUCOVORIN CALCIUM
     Dosage: 250 MG/BODY
     Route: 065
     Dates: start: 201108
  2. TRAFERMIN [Concomitant]
     Active Substance: UNSPECIFIED INGREDIENT
     Route: 055
  3. BUCLADESINE SODIUM [Concomitant]
     Route: 065
  4. 5-FU [Concomitant]
     Active Substance: FLUOROURACIL
     Dosage: 500 MG/BODY BOLUS THEN 3250 MG/BODY/
     Route: 065
     Dates: start: 201108
  5. ALPROSTADIL ALFADEX [Concomitant]
     Active Substance: ALPROSTADIL ALFADEX
     Route: 065
  6. AVASTIN [Concomitant]
     Active Substance: BEVACIZUMAB
     Route: 065
     Dates: start: 201108, end: 201303
  7. BEVACIZUMAB [Concomitant]
     Active Substance: BEVACIZUMAB
     Route: 065
  8. ELPLAT [Suspect]
     Active Substance: OXALIPLATIN
     Indication: RECTAL CANCER
     Route: 041
     Dates: start: 201108
  9. POVIDONE-IODINE/SUCROSE [Concomitant]
     Route: 065

REACTIONS (3)
  - Cardiac failure chronic [Unknown]
  - Skin ulcer [Recovered/Resolved]
  - Impaired healing [Unknown]

NARRATIVE: CASE EVENT DATE: 201204
